FAERS Safety Report 11029755 (Version 1)
Quarter: 2015Q2

REPORT INFORMATION
  Report Type: Spontaneous
  Country: US (occurrence: None)
  Receive Date: 20150413
  Receipt Date: 20150413
  Transmission Date: 20150821
  Serious: No
  Sender: FDA-Public Use
  Company Number: None

PATIENT
  Age: 58 Year
  Sex: Female
  Weight: 85.28 kg

DRUGS (3)
  1. ALPRAZOLAM .25 MG SANDOZ [Suspect]
     Active Substance: ALPRAZOLAM
     Indication: BACK PAIN
     Route: 048
     Dates: start: 20141203, end: 20150406
  2. ALPRAZOLAM .25 MG SANDOZ [Suspect]
     Active Substance: ALPRAZOLAM
     Indication: STRESS
     Route: 048
     Dates: start: 20141203, end: 20150406
  3. ADVIL [Concomitant]
     Active Substance: IBUPROFEN

REACTIONS (2)
  - Product quality issue [None]
  - Drug ineffective [None]

NARRATIVE: CASE EVENT DATE: 20150406
